FAERS Safety Report 4366467-2 (Version None)
Quarter: 2004Q2

REPORT INFORMATION
  Report Type: 
  Country: None (occurrence: None)
  Receive Date: 20040527
  Receipt Date: 20040408
  Transmission Date: 20050107
  Serious: Yes (Other)
  Sender: FDA-Public Use
  Company Number: US-BRISTOL-MYERS SQUIBB COMPANY-12555967

PATIENT
  Age: 76 Year
  Sex: Male
  Weight: 101 kg

DRUGS (9)
  1. ERBITUX [Suspect]
     Indication: COLON CANCER METASTATIC
     Dosage: CYCLE 1
     Route: 042
     Dates: start: 20040318, end: 20040318
  2. ATIVAN [Concomitant]
     Indication: PREMEDICATION
  3. BENADRYL [Concomitant]
     Indication: PREMEDICATION
  4. DECADRON [Concomitant]
     Indication: PREMEDICATION
  5. TAGAMET [Concomitant]
     Indication: PREMEDICATION
  6. ZOFRAN [Concomitant]
     Indication: PREMEDICATION
  7. AMBIEN [Concomitant]
  8. HUMALOG [Concomitant]
  9. LIPITOR [Concomitant]

REACTIONS (2)
  - DYSPNOEA [None]
  - PRURITUS [None]
